FAERS Safety Report 4578018-8 (Version None)
Quarter: 2005Q1

REPORT INFORMATION
  Report Type: 
  Country: None (occurrence: None)
  Receive Date: 20050209
  Receipt Date: 20050127
  Transmission Date: 20050727
  Serious: Yes (Hospitalization, Other)
  Sender: FDA-Public Use
  Company Number: 2004119821

PATIENT
  Age: 53 Year
  Sex: Female

DRUGS (1)
  1. CELEBRA [Suspect]
     Indication: POSTOPERATIVE CARE
     Dosage: 200 MG (100 MG 2 IN 1 D) ORAL
     Route: 048
     Dates: start: 20041001, end: 20041101

REACTIONS (4)
  - BLOOD PRESSURE INCREASED [None]
  - CHEST PAIN [None]
  - SENSATION OF PRESSURE [None]
  - TACHYCARDIA [None]
